FAERS Safety Report 23969812 (Version 2)
Quarter: 2024Q3

REPORT INFORMATION
  Report Type: Spontaneous
  Country: US (occurrence: US)
  Receive Date: 20240613
  Receipt Date: 20240705
  Transmission Date: 20241017
  Serious: No
  Sender: Unknown Manufacturer
  Company Number: US-KOANAAP-SML-US-2024-00511

PATIENT

DRUGS (1)
  1. AZACITIDINE [Suspect]
     Active Substance: AZACITIDINE
     Indication: Product used for unknown indication
     Dosage: HYPODERMIC/SUBCUTANEOUS
     Route: 065

REACTIONS (3)
  - Product reconstitution quality issue [Unknown]
  - Product use complaint [Unknown]
  - No adverse event [Unknown]
